FAERS Safety Report 12194050 (Version 1)
Quarter: 2016Q1

REPORT INFORMATION
  Report Type: Spontaneous
  Country: US (occurrence: None)
  Receive Date: 20160318
  Receipt Date: 20160318
  Transmission Date: 20160526
  Serious: No
  Sender: FDA-Public Use
  Company Number: None

PATIENT
  Age: 28 Year
  Sex: Female
  Weight: 62.14 kg

DRUGS (3)
  1. PAXIL [Suspect]
     Active Substance: PAROXETINE HYDROCHLORIDE
     Indication: POST-TRAUMATIC STRESS DISORDER
     Dosage: 1 PILL ONCE DAILY TAKEN BY MOUTH
     Route: 048
     Dates: start: 20150112, end: 20160307
  2. REMERON [Concomitant]
     Active Substance: MIRTAZAPINE
  3. ONE-A-DAY WOMEN^S VITAMINS [Concomitant]

REACTIONS (10)
  - Therapy cessation [None]
  - Dizziness [None]
  - Nausea [None]
  - Paraesthesia [None]
  - Hyperhidrosis [None]
  - Serotonin syndrome [None]
  - Mania [None]
  - Drug withdrawal syndrome [None]
  - Vertigo [None]
  - Influenza like illness [None]

NARRATIVE: CASE EVENT DATE: 20160310
